FAERS Safety Report 8219547-5 (Version None)
Quarter: 2012Q1

REPORT INFORMATION
  Report Type: 
  Country: None (occurrence: None)
  Receive Date: 20120319
  Receipt Date: 20120307
  Transmission Date: 20120608
  Serious: Yes (Disabling, Other)
  Sender: FDA-Public Use
  Company Number: US-BRISTOL-MYERS SQUIBB COMPANY-16444218

PATIENT
  Age: 57 Year
  Sex: Female
  Weight: 77 kg

DRUGS (9)
  1. TYLENOL [Concomitant]
     Indication: PAIN
  2. ADVAIR DISKUS 100/50 [Concomitant]
  3. PRAVACHOL [Suspect]
     Indication: CEREBRAL HAEMORRHAGE
     Dosage: 40MG DOWN TO HALF BY USING A PILL CUTTER AS 20MG
  4. CLARINEX [Concomitant]
  5. ALBUTEROL [Concomitant]
  6. PRAVASTATIN SODIUM [Suspect]
     Indication: CEREBRAL HAEMORRHAGE
     Dosage: 40MG DOWN TO HALF BY USING A PILL CUTTER AS 20MG
  7. TYLENOL [Concomitant]
     Indication: MUSCULAR WEAKNESS
  8. ATENOLOL [Concomitant]
  9. CHLORAMPHENICOL + HYDROCORTISONE [Concomitant]

REACTIONS (5)
  - MUSCLE SPASMS [None]
  - WEIGHT INCREASED [None]
  - SKIN DISORDER [None]
  - HIATUS HERNIA [None]
  - GAIT DISTURBANCE [None]
